FAERS Safety Report 9635179 (Version 2)
Quarter: 2014Q1

REPORT INFORMATION
  Report Type: Spontaneous
  Country: JP (occurrence: JP)
  Receive Date: 20131021
  Receipt Date: 20140116
  Transmission Date: 20141002
  Serious: Yes (Hospitalization, Other)
  Sender: FDA-Public Use
  Company Number: JP-PFIZER INC-2013298350

PATIENT
  Age: 39 Year
  Sex: Male

DRUGS (8)
  1. SPIRONOLACTONE [Suspect]
  2. METFORMIN HYDROCHLORIDE [Suspect]
  3. PIOGLITAZONE [Concomitant]
  4. SITAGLIPTIN PHOSPHATE [Concomitant]
  5. CANDESARTAN [Concomitant]
  6. BISOPROLOL [Concomitant]
  7. GABAPENTIN [Concomitant]
  8. PAROXETINE [Concomitant]

REACTIONS (7)
  - Intentional overdose [Recovering/Resolving]
  - Suicide attempt [Recovering/Resolving]
  - Altered state of consciousness [Recovering/Resolving]
  - Lactic acidosis [Recovering/Resolving]
  - White blood cell count increased [Recovering/Resolving]
  - Renal impairment [Recovering/Resolving]
  - Hyperkalaemia [Recovering/Resolving]
